FAERS Safety Report 25009813 (Version 1)
Quarter: 2025Q1

REPORT INFORMATION
  Report Type: Spontaneous
  Country: CA (occurrence: None)
  Receive Date: 20250225
  Receipt Date: 20250225
  Transmission Date: 20250409
  Serious: Yes (Hospitalization, Other)
  Sender: INCYTE
  Company Number: CA-EVENT-001675

PATIENT
  Age: 12 Year

DRUGS (3)
  1. PEMAZYRE [Suspect]
     Active Substance: PEMIGATINIB
     Indication: Glioneuronal tumour
     Dosage: 9 MILLIGRAM, QD (14 DAYS/21 DAYS (1 WEEK (7 DAYS) OFF EACH CYCLE))
  2. PEMAZYRE [Suspect]
     Active Substance: PEMIGATINIB
     Dosage: 13.5 MILLIGRAM, QD (14 DAYS ON AND 7 DAYS OFF IN A 21 DAY CYCLE)
  3. PEMAZYRE [Suspect]
     Active Substance: PEMIGATINIB
     Dosage: 13.5 MILLIGRAM, QD (14 DAYS ON AND 7 DAYS OFF IN A 21 DAY CYCLE)

REACTIONS (3)
  - Hip fracture [Recovering/Resolving]
  - Off label use [Unknown]
  - Inappropriate schedule of product administration [Unknown]
